FAERS Safety Report 19752702 (Version 2)
Quarter: 2021Q3

REPORT INFORMATION
  Report Type: Report from Study
  Country: RU (occurrence: RU)
  Receive Date: 20210827
  Receipt Date: 20210916
  Transmission Date: 20211014
  Serious: Yes (Other)
  Sender: FDA-Public Use
  Company Number: RU-ROCHE-2894584

PATIENT
  Age: 55 Year
  Sex: Male
  Weight: 85 kg

DRUGS (6)
  1. CARDIOMAGNYL [Concomitant]
     Active Substance: ASPIRIN\MAGNESIUM HYDROXIDE
     Indication: HEADACHE
     Route: 048
     Dates: start: 20190408
  2. IBUPROFEN. [Concomitant]
     Active Substance: IBUPROFEN
     Indication: ARTHRALGIA
     Route: 048
     Dates: start: 20190420
  3. METHYLPREDNISOLONE. [Concomitant]
     Active Substance: METHYLPREDNISOLONE
     Indication: PREMEDICATION
     Dosage: NEXT DOSE RECEIVED ON: 10/DEC/2018, 14/MAY/2019, 24/OCT/2019, 01/APR/2020, 22/SEP/2020 AND 09/MAR/20
     Route: 042
     Dates: start: 20181120, end: 20181120
  4. CHLOROPYRAMINE [Concomitant]
     Active Substance: CHLOROPYRAMINE
     Indication: PREMEDICATION
     Dosage: NEXT DOSE RECEIVED ON: 10/DEC/2018, 14/MAY/2019, 24/OCT/2019, 01/APR/2020, 22/SEP/2020 AND 09/MAR/20
     Route: 030
     Dates: start: 20181120, end: 20181120
  5. IBUPROFEN. [Concomitant]
     Active Substance: IBUPROFEN
     Indication: HEADACHE
     Route: 048
     Dates: start: 201903, end: 20190407
  6. OCRELIZUMAB. [Suspect]
     Active Substance: OCRELIZUMAB
     Indication: PROGRESSIVE MULTIPLE SCLEROSIS
     Dosage: DATE OF MOST RECENT DOSE OF OCRELIZUMAB PRIOR TO THIS SAE ONSET 09/MAR/2021 (600 MG)?OCRELIZUMAB WIL
     Route: 042
     Dates: start: 20181120

REACTIONS (1)
  - Malignant melanoma [Not Recovered/Not Resolved]

NARRATIVE: CASE EVENT DATE: 20210723
